FAERS Safety Report 9527712 (Version 1)
Quarter: 2013Q1

REPORT INFORMATION
  Report Type: Spontaneous
  Country: US (occurrence: None)
  Receive Date: 20130314
  Receipt Date: 20130314
  Transmission Date: 20140127
  Serious: Yes (Hospitalization, Other)
  Sender: FDA-Public Use
  Company Number: 2012PROUSA02266

PATIENT
  Age: 72 Year
  Sex: Male
  Weight: 91 kg

DRUGS (24)
  1. PROVENGE [Suspect]
     Indication: PROSTATE CANCER METASTATIC
     Route: 042
     Dates: start: 20121018, end: 20121018
  2. ASPIRIN (ACETYLSALICYLIC ACID) [Concomitant]
  3. TOPROL (METOPROLO SUCCINATE) [Concomitant]
  4. CRESTOR (ROSUVASTATIN CALCIUM)? [Concomitant]
  5. VICODIN (HYDROCODONE BITARTRATE, PARACETAMOL) [Concomitant]
  6. ACTOS (PIOGLITAZONE HYDROCHLORIDE) [Concomitant]
  7. LISINOPRIL (LISIOPRIL) [Concomitant]
  8. ALLEGRA (FEXOFENADINE HYROCHLORIDE) [Concomitant]
  9. LUPRON (LEUPROREILIN ACETATE) [Concomitant]
  10. ALLOPURINOL [Concomitant]
  11. LOPID (GEMFIBROZIL) [Concomitant]
  12. LANTUS (INSULIN GLARGINE) [Concomitant]
  13. METFORMIN (METFORMIN HYDROCHLORIDE) [Concomitant]
  14. FLOMAX (TAMSULOSIN HYDROCHLORIDE) [Concomitant]
  15. THYROXINE (LEVOTHYROXINE SODIUM) [Concomitant]
  16. CALCIUM + VITAMIN D (CALCIUM LACTATE, CALCIUM PHOSPHATE, COLECALCIFEROL)? [Concomitant]
  17. OMEGA 3 COMPLEX (SALMON OIL) [Concomitant]
  18. HALCION (TRIAZOLAM) [Concomitant]
  19. NORVASC (AMLODIPINE BESILATE) [Concomitant]
  20. MULTIPLE VITAMINS (ASCORBIC ACID, ERGOCALCIFEROL, FOLIC ACID, RETINOL, TOCOPHEROL, VITAMIN B NOS) [Concomitant]
  21. VITAMIN C (ASCORBIN ACID) [Concomitant]
  22. VITAMIN B12 (CYANOCOBALAMIN) [Concomitant]
  23. FISH OIL (FISH OIL) [Concomitant]
  24. XGEVA (DENOSUMAB) [Concomitant]

REACTIONS (1)
  - Disease progression [None]
